FAERS Safety Report 24840725 (Version 1)
Quarter: 2025Q1

REPORT INFORMATION
  Report Type: Spontaneous
  Country: US (occurrence: None)
  Receive Date: 20250110
  Receipt Date: 20250110
  Transmission Date: 20250409
  Serious: Yes (Life-Threatening, Hospitalization, Disabling, Other)
  Sender: FDA-CTU
  Company Number: None

PATIENT
  Age: 29 Year
  Sex: Female
  Weight: 129.73 kg

DRUGS (4)
  1. NEXPLANON [Suspect]
     Active Substance: ETONOGESTREL
     Indication: Ovarian cyst
     Dates: start: 20200320
  2. NEXPLANON [Suspect]
     Active Substance: ETONOGESTREL
     Indication: Contraception
  3. DEPO-PROVERA [Suspect]
     Active Substance: MEDROXYPROGESTERONE ACETATE
  4. Women multi vitamin gummies [Concomitant]

REACTIONS (18)
  - Haemorrhage [None]
  - Anaemia [None]
  - Dyspareunia [None]
  - Vulvovaginal pain [None]
  - Presyncope [None]
  - Vaginal haemorrhage [None]
  - pH body fluid abnormal [None]
  - Pain in extremity [None]
  - Pain in extremity [None]
  - Pain in extremity [None]
  - Arthralgia [None]
  - Chest pain [None]
  - Migraine [None]
  - Headache [None]
  - Stress [None]
  - Asthenia [None]
  - Depression [None]
  - Dehydration [None]

NARRATIVE: CASE EVENT DATE: 20121124
